FAERS Safety Report 15132584 (Version 1)
Quarter: 2018Q3

REPORT INFORMATION
  Report Type: Report from Study
  Country: US (occurrence: US)
  Receive Date: 20180712
  Receipt Date: 20180712
  Transmission Date: 20181010
  Serious: Yes (Other)
  Sender: FDA-Public Use
  Company Number: US-ROCHE-2152237

PATIENT
  Sex: Female
  Weight: 76.3 kg

DRUGS (3)
  1. PACLITAXEL. [Suspect]
     Active Substance: PACLITAXEL
     Indication: TRIPLE NEGATIVE BREAST CANCER
     Dosage: MOST RECENT DOSE PRIOR TO EVENT ONSET 05/DEC/2017, 414MG
     Route: 042
     Dates: start: 20171114
  2. ATEZOLIZUMAB. [Suspect]
     Active Substance: ATEZOLIZUMAB
     Indication: TRIPLE NEGATIVE BREAST CANCER
     Dosage: FURTHER DOSES RECEIVED ON , 04/JAN/2018, 25/JAN/2018, 08/FEB/2018?MOST RECENT DOSE PRIOR TO EVENT ON
     Route: 042
     Dates: start: 20171114
  3. CARBOPLATIN. [Suspect]
     Active Substance: CARBOPLATIN
     Indication: TRIPLE NEGATIVE BREAST CANCER
     Dosage: INITIAL DOSE 480MG?FURTHER DOSES RECEIVED ON , 04/JAN/2018, 25/JAN/2018, 08/FEB/2018?MOST RECENT DOS
     Route: 042
     Dates: start: 20171114

REACTIONS (1)
  - Neutrophil count decreased [Unknown]
